FAERS Safety Report 6973781-0 (Version None)
Quarter: 2010Q3

REPORT INFORMATION
  Report Type: 
  Country: None (occurrence: None)
  Receive Date: 20100909
  Receipt Date: 20100902
  Transmission Date: 20110219
  Serious: Yes (Other)
  Sender: FDA-Public Use
  Company Number: A0863884A

PATIENT
  Sex: Female
  Weight: 1.9 kg

DRUGS (4)
  1. COMBIVIR [Suspect]
     Indication: ANTIRETROVIRAL THERAPY
     Dosage: 2TAB PER DAY
     Dates: start: 20100413, end: 20100808
  2. INTELENCE [Suspect]
     Indication: ANTIRETROVIRAL THERAPY
     Dosage: 200MGD PER DAY
     Dates: start: 20100413, end: 20100808
  3. RETROVIR [Concomitant]
     Indication: HIV INFECTION
     Dosage: 2MGKH PER DAY
     Dates: start: 20100808, end: 20100808
  4. RETROVIR [Concomitant]
     Dosage: 1MGKH PER DAY
     Dates: start: 20100808, end: 20100808

REACTIONS (3)
  - DRUG EXPOSURE DURING PREGNANCY [None]
  - PREMATURE BABY [None]
  - PRENATAL SCREENING TEST ABNORMAL [None]
